FAERS Safety Report 4556391-4 (Version None)
Quarter: 2005Q1

REPORT INFORMATION
  Report Type: 
  Country: None (occurrence: None)
  Receive Date: 20050105
  Receipt Date: 20040607
  Transmission Date: 20050727
  Serious: Yes (Other)
  Sender: FDA-Public Use
  Company Number: 20040600327

PATIENT
  Age: 79 Year
  Sex: Male
  Weight: 71 kg

DRUGS (6)
  1. ESMOLOL HCL [Suspect]
     Dosage: 90 MCKG IV
     Route: 042
     Dates: start: 20040605, end: 20040607
  2. NITROGLYCERIN [Concomitant]
  3. AMIODARONE HCL [Concomitant]
  4. DOBUTAMINE HCL [Concomitant]
  5. MILRINONE [Concomitant]
  6. LASIX [Concomitant]

REACTIONS (3)
  - INJECTION SITE ERYTHEMA [None]
  - INJECTION SITE SWELLING [None]
  - INJECTION SITE VESICLES [None]
